FAERS Safety Report 10577469 (Version 2)
Quarter: 2015Q1

REPORT INFORMATION
  Report Type: Spontaneous
  Country: US (occurrence: US)
  Receive Date: 20141111
  Receipt Date: 20150116
  Transmission Date: 20150720
  Serious: Yes (Death, Hospitalization, Other)
  Sender: FDA-Public Use
  Company Number: US-009507513-1411USA004529

PATIENT
  Sex: Male
  Weight: 93 kg

DRUGS (2)
  1. FOLIC ACID. [Concomitant]
     Active Substance: FOLIC ACID
     Indication: HYPERTENSION
     Dosage: UNK
     Dates: start: 19991214, end: 20080412
  2. JANUVIA [Suspect]
     Active Substance: SITAGLIPTIN PHOSPHATE
     Indication: TYPE 2 DIABETES MELLITUS
     Dosage: 100 MG, QD
     Route: 048
     Dates: start: 20070314, end: 20080413

REACTIONS (26)
  - Cardiogenic shock [Unknown]
  - Anxiety [Unknown]
  - Hypokalaemia [Unknown]
  - Insomnia [Unknown]
  - Death [Fatal]
  - Ischaemic cardiomyopathy [Unknown]
  - Umbilical hernia [Unknown]
  - Atrial fibrillation [Unknown]
  - Pancreatic carcinoma [Unknown]
  - Cardiac failure congestive [Unknown]
  - Hyponatraemia [Unknown]
  - Rheumatoid arthritis [Unknown]
  - Increased tendency to bruise [Unknown]
  - Pancreatectomy [Unknown]
  - Epistaxis [Unknown]
  - Acute kidney injury [Unknown]
  - Aortic stenosis [Unknown]
  - Asthenia [Unknown]
  - Melanocytic naevus [Unknown]
  - Squamous cell carcinoma [Unknown]
  - Acute myocardial infarction [Unknown]
  - Coronary vascular graft occlusion [Unknown]
  - Splenectomy [Unknown]
  - Myocardial infarction [Unknown]
  - Cardiac failure congestive [Unknown]
  - Anaemia [Unknown]

NARRATIVE: CASE EVENT DATE: 200711
